FAERS Safety Report 19989221 (Version 8)
Quarter: 2022Q3

REPORT INFORMATION
  Report Type: Spontaneous
  Country: US (occurrence: US)
  Receive Date: 20211025
  Receipt Date: 20220825
  Transmission Date: 20221027
  Serious: Yes (Hospitalization)
  Sender: FDA-Public Use
  Company Number: US-BIOGEN-2021BI01060222

PATIENT
  Sex: Female
  Weight: 110.32 kg

DRUGS (6)
  1. TYSABRI [Suspect]
     Active Substance: NATALIZUMAB
     Indication: Multiple sclerosis
     Route: 050
     Dates: start: 20210318
  2. TYSABRI [Suspect]
     Active Substance: NATALIZUMAB
     Route: 050
     Dates: start: 20211110
  3. BACLOFEN [Concomitant]
     Active Substance: BACLOFEN
     Indication: Product used for unknown indication
     Route: 050
     Dates: start: 20210705
  4. DOCUSATE SODIUM [Concomitant]
     Active Substance: DOCUSATE SODIUM
     Indication: Product used for unknown indication
     Dosage: AS DIRECTED
     Route: 050
     Dates: start: 20210126
  5. ONDANSETRON [Concomitant]
     Active Substance: ONDANSETRON
     Indication: Nausea
     Dosage: DISINTEGRATING TABLET, FOR 3 DAYS AS NEEDED
     Route: 050
     Dates: start: 20210212
  6. TRAZODONE [Concomitant]
     Active Substance: TRAZODONE HYDROCHLORIDE
     Indication: Product used for unknown indication
     Dosage: AT BED TIME AS NEEDED
     Route: 050
     Dates: start: 20210126

REACTIONS (6)
  - Depression [Not Recovered/Not Resolved]
  - Product dose omission issue [Unknown]
  - Neuralgia [Unknown]
  - Pain [Unknown]
  - Joint contracture [Unknown]
  - Multiple sclerosis [Unknown]
